FAERS Safety Report 8836640 (Version 1)
Quarter: 2012Q4

REPORT INFORMATION
  Report Type: Spontaneous
  Country: BR (occurrence: None)
  Receive Date: 20121009
  Receipt Date: 20121009
  Transmission Date: 20130627
  Serious: Yes (Life-Threatening, Hospitalization)
  Sender: FDA-Public Use
  Company Number: BR-MACLEODS PHARMA-000028

PATIENT
  Age: 18 Year
  Sex: Male

DRUGS (3)
  1. AMLODIPINE (AMLODIPINE) [Suspect]
  2. HYDROCHLOROTHIAZIDE [Suspect]
  3. FLUNARIZINE [Suspect]

REACTIONS (25)
  - Intentional overdose [None]
  - Suicide attempt [None]
  - Arrhythmia [None]
  - Dizziness [None]
  - Vertigo [None]
  - Headache [None]
  - Paraesthesia [None]
  - Hypotension [None]
  - Bradycardia [None]
  - Tachypnoea [None]
  - Oxygen saturation decreased [None]
  - Poor peripheral circulation [None]
  - Atrioventricular block [None]
  - Electrocardiogram ST segment depression [None]
  - Extrasystoles [None]
  - ECG P wave inverted [None]
  - Electrocardiogram PR prolongation [None]
  - Hyperglycaemia [None]
  - Anuria [None]
  - Pulmonary oedema [None]
  - Bundle branch block left [None]
  - Pulmonary congestion [None]
  - Conduction disorder [None]
  - Toxicity to various agents [None]
  - Electrolyte imbalance [None]
